FAERS Safety Report 24252107 (Version 2)
Quarter: 2024Q3

REPORT INFORMATION
  Report Type: Spontaneous
  Country: PT (occurrence: PT)
  Receive Date: 20240827
  Receipt Date: 20240918
  Transmission Date: 20241017
  Serious: Yes (Other)
  Sender: AUROBINDO
  Company Number: PT-MYLANLABS-2024M1074209

PATIENT
  Age: 58 Year
  Sex: Female

DRUGS (5)
  1. IMATINIB [Suspect]
     Active Substance: IMATINIB
     Indication: B precursor type acute leukaemia
     Dosage: 400 MILLIGRAM, ONCE A DAY
     Route: 065
  2. VALACYCLOVIR HYDROCHLORIDE [Suspect]
     Active Substance: VALACYCLOVIR HYDROCHLORIDE
     Indication: Drug therapy
     Dosage: 1 GRAM
     Route: 065
  3. METHOTREXATE [Suspect]
     Active Substance: METHOTREXATE
     Indication: B precursor type acute leukaemia
     Dosage: 30 MILLIGRAM, EVERY WEEK
     Route: 030
  4. THIOGUANINE [Suspect]
     Active Substance: THIOGUANINE
     Indication: Drug therapy
     Dosage: 2 DOSAGE FORM, TWO TIMES A DAY, TWO TIMES A DAY QOD (40 MG/20 MG EVERY OTHER DAY)
     Route: 065
  5. THIOGUANINE [Suspect]
     Active Substance: THIOGUANINE
     Indication: Acute lymphocytic leukaemia

REACTIONS (6)
  - Pneumonia [Unknown]
  - Pancytopenia [Unknown]
  - Neutrophil morphology abnormal [Unknown]
  - White blood cell morphology abnormal [Unknown]
  - Monocyte morphology abnormal [Unknown]
  - Red blood cell morphology abnormal [Unknown]
